FAERS Safety Report 8050617-0 (Version None)
Quarter: 2012Q1

REPORT INFORMATION
  Report Type: 
  Country: None (occurrence: None)
  Receive Date: 20120117
  Receipt Date: 20120117
  Transmission Date: 20120608
  Serious: Yes (Other)
  Sender: FDA-Public Use
  Company Number: None

PATIENT
  Age: 11 Year
  Sex: Male
  Weight: 40.369 kg

DRUGS (2)
  1. SINGULAIR [Suspect]
     Indication: MULTIPLE ALLERGIES
     Dosage: 1 TABLET -5 MG-
     Route: 048
     Dates: start: 20101001, end: 20120101
  2. SINGULAIR [Suspect]
     Indication: SINUSITIS
     Dosage: 1 TABLET -5 MG-
     Route: 048
     Dates: start: 20101001, end: 20120101

REACTIONS (4)
  - SUICIDAL IDEATION [None]
  - INSOMNIA [None]
  - ABDOMINAL PAIN UPPER [None]
  - DEPRESSION [None]
